FAERS Safety Report 9891422 (Version 1)
Quarter: 2014Q1

REPORT INFORMATION
  Report Type: Spontaneous
  Country: US (occurrence: US)
  Receive Date: 20140212
  Receipt Date: 20140212
  Transmission Date: 20141002
  Serious: No
  Sender: FDA-Public Use
  Company Number: US-PFIZER INC-2014038842

PATIENT
  Age: 26 Year
  Sex: 0

DRUGS (1)
  1. LYRICA [Suspect]
     Indication: FIBROMYALGIA
     Dosage: 50 MG, 2X/DAY

REACTIONS (3)
  - Drug ineffective [Unknown]
  - Fatigue [Unknown]
  - Mobility decreased [Unknown]
